FAERS Safety Report 7384593-0 (Version None)
Quarter: 2011Q1

REPORT INFORMATION
  Report Type: 
  Country: None (occurrence: None)
  Receive Date: 20110322
  Receipt Date: 20110318
  Transmission Date: 20110831
  Serious: Yes (Other)
  Sender: FDA-Public Use
  Company Number: SP03530

PATIENT
  Age: 33 Year
  Sex: Female

DRUGS (4)
  1. DIMETHICONE [Concomitant]
  2. BISACODYL [Concomitant]
  3. VISICOL [Suspect]
     Indication: BOWEL PREPARATION
     Dosage: 15 GM ,ORAL
     Route: 048
     Dates: start: 20110218, end: 20110218
  4. SENNOSIDE [Concomitant]

REACTIONS (4)
  - OEDEMA PERIPHERAL [None]
  - ANAPHYLACTIC REACTION [None]
  - RASH [None]
  - FLUSHING [None]
